FAERS Safety Report 26037363 (Version 2)
Quarter: 2025Q4

REPORT INFORMATION
  Report Type: Report from Study
  Country: JP (occurrence: JP)
  Receive Date: 20251112
  Receipt Date: 20251127
  Transmission Date: 20260117
  Serious: Yes (Other)
  Sender: BIOGEN
  Company Number: JP-BIOGEN-2090026

PATIENT
  Age: 63 Year
  Sex: Female

DRUGS (1)
  1. QALSODY [Suspect]
     Active Substance: TOFERSEN
     Indication: Amyotrophic lateral sclerosis

REACTIONS (4)
  - COVID-19 [Unknown]
  - CSF protein increased [Unknown]
  - Respiratory disorder [Unknown]
  - CSF cell count increased [Unknown]
